FAERS Safety Report 16598477 (Version 1)
Quarter: 2019Q3

REPORT INFORMATION
  Report Type: Report from Study
  Country: US (occurrence: US)
  Receive Date: 20190719
  Receipt Date: 20190719
  Transmission Date: 20191004
  Serious: Yes (Death, Hospitalization)
  Sender: FDA-Public Use
  Company Number: US-PUMA BIOTECHNOLOGY, LTD.-2018US008821

PATIENT

DRUGS (1)
  1. NERLYNX [Suspect]
     Active Substance: NERATINIB
     Indication: BREAST CANCER
     Dosage: 200 MG, DAILY
     Route: 048
     Dates: start: 20180822, end: 20190711

REACTIONS (9)
  - Death [Fatal]
  - Back pain [Unknown]
  - Decreased appetite [Recovered/Resolved]
  - Pneumonia [Unknown]
  - Muscular weakness [Not Recovered/Not Resolved]
  - Constipation [Unknown]
  - Fatigue [Not Recovered/Not Resolved]
  - Underdose [Unknown]
  - Nausea [Recovered/Resolved]

NARRATIVE: CASE EVENT DATE: 2018
